FAERS Safety Report 23438419 (Version 1)
Quarter: 2024Q1

REPORT INFORMATION
  Report Type: Spontaneous
  Country: US (occurrence: None)
  Receive Date: 20240124
  Receipt Date: 20240124
  Transmission Date: 20240410
  Serious: Yes (Hospitalization)
  Sender: FDA-Public Use
  Company Number: None

PATIENT
  Age: 77 Year
  Sex: Female
  Weight: 68.04 kg

DRUGS (3)
  1. CARBOPLATIN [Suspect]
     Active Substance: CARBOPLATIN
     Dates: end: 20230302
  2. FEMARA [Suspect]
     Active Substance: LETROZOLE
     Dates: end: 20240106
  3. TAXOL [Suspect]
     Active Substance: PACLITAXEL
     Dates: end: 20230302

REACTIONS (4)
  - Tibia fracture [None]
  - Fall [None]
  - Contusion [None]
  - Fracture displacement [None]

NARRATIVE: CASE EVENT DATE: 20240107
